FAERS Safety Report 5584671-2 (Version None)
Quarter: 2008Q1

REPORT INFORMATION
  Report Type: 
  Country: None (occurrence: None)
  Receive Date: 20080108
  Receipt Date: 20071227
  Transmission Date: 20080703
  Serious: Yes (Other)
  Sender: FDA-Public Use
  Company Number: US-PFIZER INC-2007057655

PATIENT
  Sex: Female

DRUGS (1)
  1. DILANTIN [Suspect]

REACTIONS (9)
  - EPISTAXIS [None]
  - FATIGUE [None]
  - GASTROOESOPHAGEAL REFLUX DISEASE [None]
  - HAEMORRHAGE [None]
  - MEMORY IMPAIRMENT [None]
  - PHOTOPSIA [None]
  - SLEEP APNOEA SYNDROME [None]
  - SOMNOLENCE [None]
  - VITREOUS FLOATERS [None]
